FAERS Safety Report 6698001-6 (Version None)
Quarter: 2010Q2

REPORT INFORMATION
  Report Type: 
  Country: None (occurrence: None)
  Receive Date: 20100427
  Receipt Date: 20100419
  Transmission Date: 20101027
  Serious: Yes (Hospitalization)
  Sender: FDA-Public Use
  Company Number: US-WYE-H14675810

PATIENT
  Age: 67 Year
  Sex: Female

DRUGS (3)
  1. TORISEL [Suspect]
     Indication: SMALL INTESTINE CARCINOMA
     Dosage: 25 MG ON DAYS 1, 8, 15 AND 22
     Route: 042
     Dates: start: 20100127, end: 20100407
  2. COUMADIN [Concomitant]
  3. BEVACIZUMAB [Suspect]
     Indication: SMALL INTESTINE CARCINOMA
     Dosage: 10 MG/KG OVER 30 - 90 MINUTES ON DAYS 1 AND 15
     Route: 042
     Dates: start: 20100127, end: 20100127

REACTIONS (2)
  - GASTROINTESTINAL HAEMORRHAGE [None]
  - RECTAL HAEMORRHAGE [None]
